FAERS Safety Report 9242242 (Version 3)
Quarter: 2013Q2

REPORT INFORMATION
  Report Type: Report from Study
  Country: JP (occurrence: JP)
  Receive Date: 20130419
  Receipt Date: 20130605
  Transmission Date: 20140414
  Serious: Yes (Hospitalization)
  Sender: FDA-Public Use
  Company Number: JP-ABBOTT-13P-087-1077251-00

PATIENT
  Age: 50 Year
  Sex: Female

DRUGS (5)
  1. LEUPRORELIN ACETATE [Suspect]
     Indication: BREAST CANCER
     Route: 058
     Dates: start: 20120731
  2. TAMOXIFEN CITRATE WYETH [Concomitant]
     Indication: HORMONE THERAPY
     Route: 048
     Dates: start: 20120731
  3. TAMOXIFEN CITRATE WYETH [Concomitant]
     Indication: BREAST CANCER
  4. TAMOXIFEN CITRATE WYETH [Concomitant]
     Indication: BREAST OPERATION
  5. ALPRAZOLAM [Concomitant]
     Indication: HYPERVENTILATION
     Route: 048

REACTIONS (1)
  - Anal fistula [Recovered/Resolved]
